FAERS Safety Report 9774463 (Version 1)
Quarter: 2013Q4

REPORT INFORMATION
  Report Type: Spontaneous
  Country: FR (occurrence: FR)
  Receive Date: 20131220
  Receipt Date: 20131220
  Transmission Date: 20140711
  Serious: Yes (Death, Other)
  Sender: FDA-Public Use
  Company Number: FR-VERTEX PHARMACEUTICALS INC-2013-011917

PATIENT
  Sex: 0

DRUGS (5)
  1. INCIVO [Suspect]
     Indication: HEPATITIS C
     Route: 065
  2. PEG-INTERFERON [Suspect]
     Indication: HEPATITIS C
     Dosage: DOSAGE FORM: UNSPECIFIED
     Route: 065
  3. RIBAVIRIN [Suspect]
     Indication: HEPATITIS C
     Dosage: DOSAGE FORM: UNSPECIFIED
     Route: 065
  4. TACROLIMUS [Concomitant]
     Dosage: DOSAGE FORM: UNSPECIFIED
     Route: 065
  5. CYCLOSPORINE [Concomitant]
     Dosage: DOSAGE FORM: UNSPECIFIED
     Route: 065

REACTIONS (6)
  - Infection [Fatal]
  - Adverse event [Unknown]
  - Anaemia [Unknown]
  - Off label use [Unknown]
  - Drug ineffective [Unknown]
  - Viral load increased [Unknown]
